FAERS Safety Report 7085608-X (Version None)
Quarter: 2010Q4

REPORT INFORMATION
  Report Type: 
  Country: None (occurrence: None)
  Receive Date: 20101105
  Receipt Date: 20101103
  Transmission Date: 20110411
  Serious: Yes (Other)
  Sender: FDA-Public Use
  Company Number: GB-ROXANE LABORATORIES, INC.-2010-RO-01452RO

PATIENT
  Age: 48 Year
  Sex: Female

DRUGS (3)
  1. RISPERIDONE [Suspect]
     Indication: SCHIZOPHRENIA, PARANOID TYPE
     Dosage: 4 MG
  2. RISPERIDONE [Suspect]
     Dosage: 6 MG
  3. LORAZEPAM [Suspect]

REACTIONS (1)
  - DYSPHEMIA [None]
